FAERS Safety Report 4402402-6 (Version None)
Quarter: 2004Q3

REPORT INFORMATION
  Report Type: 
  Country: None (occurrence: None)
  Receive Date: 20040720
  Receipt Date: 20040629
  Transmission Date: 20050211
  Serious: Yes (Hospitalization)
  Sender: FDA-Public Use
  Company Number: PHBS2004ES08784

PATIENT
  Age: 73 Year
  Sex: Female

DRUGS (2)
  1. CARBAMAZEPINE [Suspect]
     Indication: POST HERPETIC NEURALGIA
     Dosage: 300 MG, QD
  2. LORAZEPAM [Concomitant]
     Dosage: 1 MG/DAY
     Route: 065

REACTIONS (6)
  - ABDOMINAL PAIN [None]
  - ATRIAL FIBRILLATION [None]
  - PANCREATIC PSEUDOCYST [None]
  - PANCREATITIS [None]
  - PLEURAL EFFUSION [None]
  - VOMITING [None]
